FAERS Safety Report 16599674 (Version 1)
Quarter: 2019Q3

REPORT INFORMATION
  Report Type: Spontaneous
  Country: FR (occurrence: FR)
  Receive Date: 20190720
  Receipt Date: 20190720
  Transmission Date: 20191004
  Serious: Yes (Other)
  Sender: FDA-Public Use
  Company Number: FR-AUROBINDO-AUR-APL-2019-040249

PATIENT

DRUGS (1)
  1. TRAMADOL ARROW L.P. 100 MG PROLONGED RELEASE TABLETS USP 100MG [Suspect]
     Active Substance: TRAMADOL
     Indication: PROCEDURAL PAIN
     Dosage: 150 MILLIGRAM, ONCE A DAY
     Route: 048
     Dates: start: 20190427

REACTIONS (1)
  - Anaphylactoid reaction [Unknown]

NARRATIVE: CASE EVENT DATE: 20190427
